FAERS Safety Report 17819259 (Version 1)
Quarter: 2020Q2

REPORT INFORMATION
  Report Type: Spontaneous
  Country: IN (occurrence: IN)
  Receive Date: 20200523
  Receipt Date: 20200523
  Transmission Date: 20200714
  Serious: Yes (Hospitalization)
  Sender: FDA-Public Use
  Company Number: IN-UNICHEM PHARMACEUTICALS (USA) INC-UCM202005-000628

PATIENT
  Age: 2 Year
  Sex: Male
  Weight: 13 kg

DRUGS (1)
  1. CLONIDINE HCL [Suspect]
     Active Substance: CLONIDINE HYDROCHLORIDE
     Indication: ACCIDENTAL EXPOSURE TO PRODUCT BY CHILD
     Dosage: THREE  TABLETS  OF  CLONIDINE  0.1  MG  EACH

REACTIONS (4)
  - Respiratory failure [Recovered/Resolved]
  - Accidental exposure to product by child [Unknown]
  - Hypotension [Recovered/Resolved]
  - Pneumonia aspiration [Recovered/Resolved]
